FAERS Safety Report 8105258 (Version 6)
Quarter: 2012Q4

REPORT INFORMATION
  Report Type: 
  Country: US (occurrence: US)
  Receive Date: 20110825
  Receipt Date: 20121023
  Transmission Date: 20130627
  Serious: No
  Sender: FDA-Public Use
  Company Number: US-BIOGENIDEC-2011BI031672

PATIENT
  Age: 43 None
  Sex: Female

DRUGS (2)
  1. TYSABRI [Suspect]
     Indication: MULTIPLE SCLEROSIS
     Route: 042
     Dates: start: 20110420, end: 20110812
  2. TYSABRI [Suspect]
     Indication: MULTIPLE SCLEROSIS
     Route: 042
     Dates: start: 20111205, end: 20120529

REACTIONS (13)
  - Aphonia [Recovered/Resolved]
  - Dysphonia [Recovered/Resolved]
  - Hypertension [Not Recovered/Not Resolved]
  - Pharyngitis [Recovered/Resolved]
  - Oropharyngeal candidiasis [Not Recovered/Not Resolved]
  - Vocal cord disorder [Recovered/Resolved]
  - Asthma [Not Recovered/Not Resolved]
  - Lung disorder [Recovered/Resolved]
  - Respiratory disorder [Not Recovered/Not Resolved]
  - Herpes pharyngitis [Not Recovered/Not Resolved]
  - Pneumonia [Not Recovered/Not Resolved]
  - Lung infection [Recovered/Resolved]
  - Multiple sclerosis [Not Recovered/Not Resolved]
